FAERS Safety Report 4507479-5 (Version None)
Quarter: 2004Q4

REPORT INFORMATION
  Report Type: 
  Country: None (occurrence: None)
  Receive Date: 20041118
  Receipt Date: 20041109
  Transmission Date: 20050328
  Serious: Yes (Other)
  Sender: FDA-Public Use
  Company Number: 2004-11-0484

PATIENT
  Sex: Female

DRUGS (1)
  1. NASONEX [Suspect]
     Indication: RHINITIS ALLERGIC
     Dosage: NASAL SPRAY
     Route: 045

REACTIONS (3)
  - ASTHENIA [None]
  - HYPOTHALAMO-PITUITARY DISORDERS [None]
  - ISOLATED ADRENOCORTICOTROPIC HORMONE DEFICIENCY [None]
